FAERS Safety Report 9206902 (Version 2)
Quarter: 2013Q4

REPORT INFORMATION
  Report Type: Spontaneous
  Country: US (occurrence: US)
  Receive Date: 20130403
  Receipt Date: 20131106
  Transmission Date: 20140711
  Serious: Yes (Hospitalization, Disabling)
  Sender: FDA-Public Use
  Company Number: US-BAYER-2013-039260

PATIENT
  Age: 31 Year
  Sex: Female

DRUGS (6)
  1. YASMIN [Suspect]
     Dosage: UNK
     Route: 048
     Dates: start: 200401, end: 201104
  2. OCELLA [Suspect]
     Dosage: UNK
     Route: 048
     Dates: start: 200401, end: 201104
  3. DICLOFENAC [Concomitant]
     Dosage: 75 MG, UNK
     Route: 048
  4. SPIRONOLACTONE [Concomitant]
     Dosage: 100 MG, UNK
     Route: 048
  5. HYDROCODONE/PARACETAMOL [Concomitant]
     Dosage: 5-500MG
     Route: 048
  6. PROMETHAZINE [Concomitant]
     Dosage: 12.5 MG, UNK
     Route: 048

REACTIONS (8)
  - Gallbladder disorder [None]
  - Cholecystitis chronic [None]
  - Bile duct stone [None]
  - Anxiety [None]
  - Injury [None]
  - Pain [None]
  - Deformity [None]
  - Anhedonia [None]
